FAERS Safety Report 9616967 (Version 4)
Quarter: 2017Q2

REPORT INFORMATION
  Report Type: Report from Study
  Country: US (occurrence: US)
  Receive Date: 20131011
  Receipt Date: 20170616
  Transmission Date: 20170830
  Serious: Yes (Death, Hospitalization, Other)
  Sender: FDA-Public Use
  Company Number: US-ALEXION-A201302566

PATIENT
  Age: 38 Year
  Sex: Female

DRUGS (13)
  1. SOLIRIS [Suspect]
     Active Substance: ECULIZUMAB
     Dosage: 900 MG, QW X 4 WKS
     Route: 042
     Dates: start: 2013
  2. SOLIRIS [Suspect]
     Active Substance: ECULIZUMAB
     Dosage: 1200 MG, Q2W
     Route: 042
     Dates: start: 2013
  3. RITUXAN [Concomitant]
     Active Substance: RITUXIMAB
     Indication: ANTIPHOSPHOLIPID SYNDROME
     Dosage: UNK, QW
     Route: 065
     Dates: start: 201602
  4. PREDNISONE. [Concomitant]
     Active Substance: PREDNISONE
     Indication: ANTIPHOSPHOLIPID SYNDROME
     Dosage: 10 MG, UNK
     Route: 065
  5. SOLIRIS [Suspect]
     Active Substance: ECULIZUMAB
     Dosage: 900 MG, QW X 4 WEEKS
     Route: 042
     Dates: start: 201512
  6. SOLIRIS [Suspect]
     Active Substance: ECULIZUMAB
     Indication: OFF LABEL USE
     Dosage: 1200 MG, Q2W
     Route: 042
     Dates: start: 201108, end: 201309
  7. IMMUNOGLOBULIN                     /00025201/ [Concomitant]
     Active Substance: HUMAN IMMUNOGLOBULIN G
     Indication: IMMUNOSUPPRESSION
     Dosage: EVERY 3-4 WEEKS
     Route: 042
     Dates: start: 2011
  8. SOLIRIS [Suspect]
     Active Substance: ECULIZUMAB
     Dosage: 1200 MG, Q2W
     Route: 042
     Dates: start: 201601, end: 20160414
  9. COUMADIN [Concomitant]
     Active Substance: WARFARIN SODIUM
     Indication: ANTIPHOSPHOLIPID SYNDROME
     Route: 065
  10. IMMUNOGLOBULIN                     /00025201/ [Concomitant]
     Active Substance: HUMAN IMMUNOGLOBULIN G
     Indication: HYPOGAMMAGLOBULINAEMIA
     Dosage: EVERY 3 WEEKS
     Route: 042
  11. RITUXAN [Concomitant]
     Active Substance: RITUXIMAB
     Indication: THROMBOCYTOPENIA
  12. RITUXAN [Concomitant]
     Active Substance: RITUXIMAB
     Indication: PLATELET COUNT DECREASED
  13. SOLIRIS [Suspect]
     Active Substance: ECULIZUMAB
     Indication: ANTIPHOSPHOLIPID SYNDROME
     Dosage: 900 MG, QW FOR 4 WEEKS
     Route: 042
     Dates: start: 20110702

REACTIONS (51)
  - Subdural haematoma [Unknown]
  - Thrombocytopenia [Recovered/Resolved]
  - Device malfunction [Unknown]
  - Cerebrovascular accident [Fatal]
  - Device related infection [Recovered/Resolved]
  - Pneumonia mycoplasmal [Recovered/Resolved]
  - Acute respiratory failure [Recovered/Resolved]
  - Cerebrovascular accident [Recovered/Resolved]
  - Peritonitis [Unknown]
  - Staphylococcal infection [Recovered/Resolved]
  - Thrombocytopenia [Unknown]
  - Cerebral infarction [Fatal]
  - Fluid overload [Unknown]
  - Lividity [Recovered/Resolved]
  - Staphylococcal infection [Recovered/Resolved]
  - Mental impairment [Unknown]
  - International normalised ratio increased [Unknown]
  - Off label use [Unknown]
  - Neisseria infection [Recovered/Resolved]
  - Staphylococcal bacteraemia [Recovered/Resolved]
  - Lividity [Recovered/Resolved]
  - Staphylococcal infection [Unknown]
  - Prothrombin level abnormal [Recovered/Resolved]
  - Speech disorder [Recovered/Resolved]
  - Confusional state [Recovered/Resolved]
  - Condition aggravated [Unknown]
  - Cardiomyopathy [Unknown]
  - Brain natriuretic peptide increased [Unknown]
  - Headache [Recovered/Resolved]
  - Staphylococcal infection [Unknown]
  - Ejection fraction decreased [Unknown]
  - International normalised ratio abnormal [Unknown]
  - Subdural haematoma [Recovered/Resolved]
  - Cerebellar stroke [Recovered/Resolved]
  - Peritonitis bacterial [Recovered/Resolved]
  - Lung disorder [Recovered/Resolved]
  - Haptoglobin decreased [Recovering/Resolving]
  - Staphylococcal infection [Recovered/Resolved]
  - Coagulopathy [Unknown]
  - Subdural haematoma [Not Recovered/Not Resolved]
  - Platelet count decreased [Recovering/Resolving]
  - Blood lactate dehydrogenase increased [Recovering/Resolving]
  - Platelet count decreased [Unknown]
  - Skin lesion [Unknown]
  - Fluid overload [Recovered/Resolved]
  - Subdural haematoma [Unknown]
  - Device related infection [Unknown]
  - Hypogammaglobulinaemia [Not Recovered/Not Resolved]
  - Lung infiltration [Unknown]
  - Lacunar stroke [Recovered/Resolved]
  - Neurological symptom [Recovered/Resolved]

NARRATIVE: CASE EVENT DATE: 201302
